FAERS Safety Report 10453312 (Version 1)
Quarter: 2014Q3

REPORT INFORMATION
  Report Type: Spontaneous
  Country: BE (occurrence: BE)
  Receive Date: 20140915
  Receipt Date: 20140915
  Transmission Date: 20150326
  Serious: Yes (Death, Hospitalization)
  Sender: FDA-Public Use
  Company Number: PHHY2014BE117118

PATIENT
  Age: 37 Year
  Sex: Male

DRUGS (4)
  1. DIPHANTOINE [Suspect]
     Active Substance: PHENYTOIN
     Indication: EPILEPSY
  2. CLONAZEPAM. [Suspect]
     Active Substance: CLONAZEPAM
     Indication: EPILEPSY
  3. VALPROIC ACID. [Suspect]
     Active Substance: VALPROIC ACID
     Indication: EPILEPSY
  4. MIDAZOLAM [Suspect]
     Active Substance: MIDAZOLAM\MIDAZOLAM HYDROCHLORIDE
     Indication: EPILEPSY

REACTIONS (6)
  - Status epilepticus [Fatal]
  - Intracranial pressure increased [Fatal]
  - Drug ineffective [Unknown]
  - Immune reconstitution inflammatory syndrome [Fatal]
  - Cryptococcosis [Fatal]
  - Brain oedema [Fatal]
